FAERS Safety Report 4940146-2 (Version None)
Quarter: 2006Q1

REPORT INFORMATION
  Report Type: 
  Country: None (occurrence: None)
  Receive Date: 20060307
  Receipt Date: 20060220
  Transmission Date: 20060701
  Serious: Yes (Hospitalization, Other)
  Sender: FDA-Public Use
  Company Number: 2006AL000499

PATIENT
  Age: 22 Year
  Sex: Male

DRUGS (3)
  1. PHENYTOIN [Suspect]
     Dosage: PO
     Route: 048
  2. ACETAMINOPHEN [Suspect]
     Dosage: 25 GM; PO
     Route: 048
  3. IBUPROFEN [Suspect]
     Dosage: PO
     Route: 048

REACTIONS (10)
  - DRUG TOXICITY [None]
  - HAEMODIALYSIS [None]
  - HEPATIC ENCEPHALOPATHY [None]
  - HEPATIC FAILURE [None]
  - HEPATIC NECROSIS [None]
  - HEPATOTOXICITY [None]
  - LIVER TRANSPLANT [None]
  - MULTIPLE DRUG OVERDOSE INTENTIONAL [None]
  - RENAL FAILURE ACUTE [None]
  - SUICIDE ATTEMPT [None]
